FAERS Safety Report 14307870 (Version 2)
Quarter: 2019Q1

REPORT INFORMATION
  Report Type: Spontaneous
  Country: US (occurrence: US)
  Receive Date: 20171220
  Receipt Date: 20190314
  Transmission Date: 20190417
  Serious: Yes (Other)
  Sender: FDA-Public Use
  Company Number: US-ASTRAZENECA-2017SF28747

PATIENT
  Age: 21728 Day
  Sex: Female
  Weight: 60.8 kg

DRUGS (23)
  1. GABAPENTIN. [Concomitant]
     Active Substance: GABAPENTIN
  2. ALBUTEROL. [Concomitant]
     Active Substance: ALBUTEROL
  3. ONGLYZA [Suspect]
     Active Substance: SAXAGLIPTIN HYDROCHLORIDE
     Indication: TYPE 2 DIABETES MELLITUS
     Route: 048
     Dates: start: 20130925
  4. PROMETHAZINE [Concomitant]
     Active Substance: PROMETHAZINE\PROMETHAZINE HYDROCHLORIDE
  5. LOVASTATIN. [Concomitant]
     Active Substance: LOVASTATIN
  6. AZITHROMYCIN ANHYDROUS. [Concomitant]
     Active Substance: AZITHROMYCIN ANHYDROUS
  7. GENTAMICIN. [Concomitant]
     Active Substance: GENTAMICIN
  8. GABAPENTIN. [Concomitant]
     Active Substance: GABAPENTIN
  9. ONGLYZA [Suspect]
     Active Substance: SAXAGLIPTIN HYDROCHLORIDE
     Indication: TYPE 2 DIABETES MELLITUS
     Route: 048
     Dates: start: 2012, end: 2015
  10. ONGLYZA [Suspect]
     Active Substance: SAXAGLIPTIN HYDROCHLORIDE
     Indication: TYPE 2 DIABETES MELLITUS
     Route: 048
     Dates: start: 20120327, end: 20120722
  11. WARFARIN [Concomitant]
     Active Substance: WARFARIN
  12. GENTAMICIN. [Concomitant]
     Active Substance: GENTAMICIN
  13. METHADONE [Concomitant]
     Active Substance: METHADONE HYDROCHLORIDE
  14. BUMETANIDE. [Concomitant]
     Active Substance: BUMETANIDE
  15. DONEPEZIL. [Concomitant]
     Active Substance: DONEPEZIL
  16. METFORMIN [Concomitant]
     Active Substance: METFORMIN HYDROCHLORIDE
  17. DIAZEPAM. [Concomitant]
     Active Substance: DIAZEPAM
  18. ISOSORBIDE. [Concomitant]
     Active Substance: ISOSORBIDE
  19. PROMETHAZINE [Concomitant]
     Active Substance: PROMETHAZINE\PROMETHAZINE HYDROCHLORIDE
  20. KOMBIGLYZE XR [Suspect]
     Active Substance: METFORMIN HYDROCHLORIDE\SAXAGLIPTIN HYDROCHLORIDE
     Route: 048
     Dates: start: 2012, end: 2015
  21. OMEPRAZOLE. [Concomitant]
     Active Substance: OMEPRAZOLE
  22. CIPROFLOXACIN. [Concomitant]
     Active Substance: CIPROFLOXACIN
  23. VENTOLIN [Concomitant]
     Active Substance: ALBUTEROL SULFATE

REACTIONS (5)
  - Chronic left ventricular failure [Unknown]
  - Cardiovascular disorder [Unknown]
  - Cardiac failure congestive [Unknown]
  - Cardiac failure [Unknown]
  - Myocardial ischaemia [Unknown]

NARRATIVE: CASE EVENT DATE: 20140307
